FAERS Safety Report 9318385 (Version 1)
Quarter: 2013Q2

REPORT INFORMATION
  Report Type: Spontaneous
  Country: US (occurrence: US)
  Receive Date: 20130530
  Receipt Date: 20130530
  Transmission Date: 20140414
  Serious: No
  Sender: FDA-Public Use
  Company Number: US-NOVEN-12US005663

PATIENT
  Age: 7 Year
  Sex: Male
  Weight: 19.5 kg

DRUGS (2)
  1. DAYTRANA [Suspect]
     Indication: ATTENTION DEFICIT/HYPERACTIVITY DISORDER
     Dosage: 10 MG, UNK
     Route: 062
     Dates: start: 201209
  2. MUCINEX [Concomitant]
     Indication: UPPER RESPIRATORY TRACT INFECTION
     Dosage: 10 ML, UNK
     Route: 048
     Dates: start: 20121111

REACTIONS (4)
  - Diplopia [Not Recovered/Not Resolved]
  - Photophobia [Not Recovered/Not Resolved]
  - Nasopharyngitis [Not Recovered/Not Resolved]
  - Mydriasis [Not Recovered/Not Resolved]
